FAERS Safety Report 11867587 (Version 1)
Quarter: 2015Q4

REPORT INFORMATION
  Report Type: Spontaneous
  Country: None (occurrence: None)
  Receive Date: 20151224
  Receipt Date: 20151224
  Transmission Date: 20160305
  Serious: Yes (Hospitalization)
  Sender: FDA-Public Use
  Company Number: US-BRAINTREE LABORATORIES-150539

PATIENT
  Age: 45 Year
  Sex: Female
  Weight: 63 kg

DRUGS (1)
  1. GOLYTELY [Suspect]
     Active Substance: POLYETHYLENE GLYCOL 3350\POTASSIUM CHLORIDE\SODIUM BICARBONATE\SODIUM CHLORIDE\SODIUM SULFATE ANHYDROUS
     Indication: COLONOSCOPY
     Dosage: 4L
     Route: 048

REACTIONS (11)
  - Dyspnoea [None]
  - Blood chloride decreased [None]
  - Blood creatinine increased [None]
  - Blood glucose increased [None]
  - Oedema peripheral [None]
  - Blood sodium decreased [None]
  - Cardiac failure congestive [None]
  - Jugular vein distension [None]
  - Weight fluctuation [None]
  - Blood urea increased [None]
  - Carbon dioxide increased [None]
